FAERS Safety Report 21297957 (Version 1)
Quarter: 2022Q3

REPORT INFORMATION
  Report Type: Spontaneous
  Country: US (occurrence: None)
  Receive Date: 20220905
  Receipt Date: 20220905
  Transmission Date: 20221027
  Serious: Yes (Life-Threatening, Hospitalization, Disabling, Other)
  Sender: FDA-Public Use
  Company Number: None

PATIENT
  Age: 52 Year
  Sex: Female
  Weight: 56.7 kg

DRUGS (5)
  1. DILAUDID [Suspect]
     Active Substance: HYDROMORPHONE HYDROCHLORIDE
  2. FENTANYL [Suspect]
     Active Substance: FENTANYL
  3. CLONIDINE [Suspect]
     Active Substance: CLONIDINE
  4. BACLOFEN [Suspect]
     Active Substance: BACLOFEN
  5. KETAMINE [Suspect]
     Active Substance: KETAMINE

REACTIONS (8)
  - Off label use [None]
  - Overdose [None]
  - Respiratory depression [None]
  - Scoliosis [None]
  - Adverse event [None]
  - Drug dependence [None]
  - Drug withdrawal syndrome [None]
  - Depressed level of consciousness [None]

NARRATIVE: CASE EVENT DATE: 20210107
